FAERS Safety Report 4649542-4 (Version None)
Quarter: 2005Q2

REPORT INFORMATION
  Report Type: 
  Country: None (occurrence: None)
  Receive Date: 20050427
  Receipt Date: 20050411
  Transmission Date: 20051028
  Serious: Yes (Hospitalization)
  Sender: FDA-Public Use
  Company Number: A01200502044

PATIENT
  Age: 72 Year
  Sex: Female

DRUGS (15)
  1. CLOPIDOGREL BISULFATE [Suspect]
     Indication: CORONARY ANGIOPLASTY
     Dosage: 75 MG, QD, ORAL
     Route: 048
     Dates: start: 20050106, end: 20050129
  2. MARCUMAR - (PHENPROCOUMON) - UNKNOWN - UNIT DOSE: UNKNOWN [Suspect]
     Indication: ATRIAL FIBRILLATION
     Dosage: VARYING, ORAL
     Route: 048
     Dates: start: 20011001
  3. PREDNISOLONE - UNKNOWN - UNIT DOSE: UNKNOWN [Suspect]
     Indication: RHEUMATOID ARTHRITIS
     Dosage: 10 MG QD, ORAL
     Route: 048
     Dates: start: 19980101
  4. GOLD [Concomitant]
  5. METHOTREXATE [Concomitant]
  6. AZULFIDINE [Concomitant]
  7. METOPROLOL TARTRATE [Concomitant]
  8. IBUPROFEN [Concomitant]
  9. TORSEMIDE [Concomitant]
  10. NOVODIGAL MITE (BETA-ACETYLDIGOXIN) [Concomitant]
  11. NITROLINGUAL (GLYCERYL TRINITRATE) [Concomitant]
  12. PANTOPRAZOLE SODIUM [Concomitant]
  13. OSPUR D3 (COLECALCIFEROL) [Concomitant]
  14. METAMIZOLE [Concomitant]
  15. KALITRANS (POTASSIUM BICARBONATE) [Concomitant]

REACTIONS (11)
  - ANAEMIA [None]
  - BLOOD AMYLASE INCREASED [None]
  - EOSINOPHIL PERCENTAGE INCREASED [None]
  - GASTRIC HAEMORRHAGE [None]
  - HAEMATOMA [None]
  - HAEMORRHAGIC DIATHESIS [None]
  - HEPATOCELLULAR DAMAGE [None]
  - LYMPHOCYTE COUNT DECREASED [None]
  - PRURITUS [None]
  - SKIN NECROSIS [None]
  - VASCULITIS [None]
